FAERS Safety Report 24079458 (Version 1)
Quarter: 2024Q3

REPORT INFORMATION
  Report Type: Spontaneous
  Country: FI (occurrence: FI)
  Receive Date: 20240711
  Receipt Date: 20240711
  Transmission Date: 20241016
  Serious: Yes (Other)
  Sender: TEVA
  Company Number: None

PATIENT
  Age: 48 Year
  Sex: Male

DRUGS (3)
  1. ROSUVASTATIN [Suspect]
     Active Substance: ROSUVASTATIN
     Indication: Blood triglycerides increased
     Dosage: 5,MG,DAILY
     Route: 065
     Dates: start: 20230925, end: 20231010
  2. TRAMADOL [Concomitant]
     Active Substance: TRAMADOL\TRAMADOL HYDROCHLORIDE
     Indication: Back pain
     Route: 065
  3. TESTOSTERONE [Concomitant]
     Active Substance: TESTOSTERONE
     Indication: Androgen deficiency
     Route: 065

REACTIONS (9)
  - Urinary retention [Recovering/Resolving]
  - Blister [Recovering/Resolving]
  - Terminal insomnia [Recovering/Resolving]
  - Nocturia [Recovering/Resolving]
  - Weight increased [Recovering/Resolving]
  - Chromaturia [Recovering/Resolving]
  - Erythema [Recovering/Resolving]
  - Paraesthesia [Recovering/Resolving]
  - Pollakiuria [Recovering/Resolving]

NARRATIVE: CASE EVENT DATE: 20230928
